FAERS Safety Report 5080134-1 (Version None)
Quarter: 2006Q3

REPORT INFORMATION
  Report Type: 
  Country: None (occurrence: None)
  Receive Date: 20060810
  Receipt Date: 20060731
  Transmission Date: 20061208
  Serious: Yes (Hospitalization)
  Sender: FDA-Public Use
  Company Number: S06-USA-01820-01

PATIENT
  Age: 88 Year
  Sex: Male
  Weight: 68.7199 kg

DRUGS (28)
  1. NAMENDA [Suspect]
     Indication: AMNESIA
     Dosage: 5 MG QD PO
     Route: 048
     Dates: start: 20041201
  2. NAMENDA [Suspect]
     Indication: AMNESIA
     Dosage: 5 MG BID PO
     Route: 048
  3. NAMENDA [Suspect]
     Indication: AMNESIA
     Dosage: 15 MG QD PO
     Route: 048
  4. NAMENDA [Suspect]
     Indication: AMNESIA
     Dosage: 10 MG BID PO
     Route: 048
     Dates: end: 20050501
  5. NAMENDA [Suspect]
     Indication: AMNESIA
     Dosage: 5 MG BID PO
     Route: 048
     Dates: start: 20050501, end: 20060601
  6. NAMENDA [Suspect]
     Indication: AMNESIA
     Dosage: 2.5 MG BID PO
     Route: 048
     Dates: start: 20060601, end: 20060716
  7. NAMENDA [Suspect]
     Indication: AMNESIA
     Dosage: 5 MG BID PO
     Route: 048
     Dates: start: 20060717
  8. PAXIL [Suspect]
     Dosage: 10 MG QD PO
     Route: 048
     Dates: end: 20060101
  9. PAXIL [Suspect]
     Dates: start: 20060101, end: 20060418
  10. LISINOPRIL [Concomitant]
  11. LASIX [Concomitant]
  12. ATACAND [Concomitant]
  13. LOPRESSOR [Concomitant]
  14. CLONIDINE [Concomitant]
  15. GLIPIZIDE [Concomitant]
  16. PROSCAR [Concomitant]
  17. FLOMAX [Concomitant]
  18. PLENDIL [Concomitant]
  19. NITROGLYCERIN [Concomitant]
  20. POTASSIUM [Concomitant]
  21. ASPIRIN [Concomitant]
  22. PLAVIX [Concomitant]
  23. ARIPIRAZOLE [Concomitant]
  24. IMDUR [Concomitant]
  25. GLYTROL (ENTERAL NUTRITION) [Concomitant]
  26. METAMUCIL (PSYLLIUM) [Concomitant]
  27. COLACE (DOCUSATE SODIUM) [Concomitant]
  28. PHENERGAN [Concomitant]

REACTIONS (11)
  - CARDIAC FAILURE CONGESTIVE [None]
  - CONDITION AGGRAVATED [None]
  - CONFUSIONAL STATE [None]
  - FLUID RETENTION [None]
  - HEART RATE DECREASED [None]
  - HEART RATE IRREGULAR [None]
  - HYPERSOMNIA [None]
  - MYOCARDIAL INFARCTION [None]
  - PULMONARY OEDEMA [None]
  - RENAL FAILURE CHRONIC [None]
  - WEIGHT DECREASED [None]
